FAERS Safety Report 4515614-8 (Version None)
Quarter: 2004Q4

REPORT INFORMATION
  Report Type: 
  Country: None (occurrence: None)
  Receive Date: 20041126
  Receipt Date: 20041115
  Transmission Date: 20050328
  Serious: Yes (Hospitalization)
  Sender: FDA-Public Use
  Company Number: 2004094424

PATIENT
  Age: 42 Year
  Sex: Male

DRUGS (1)
  1. DOSTINEX [Suspect]
     Indication: PROLACTINOMA
     Dosage: 1 MG (1 MG, DAILY), ORAL
     Route: 048
     Dates: start: 20041101, end: 20041101

REACTIONS (2)
  - DELIRIUM [None]
  - HALLUCINATION [None]
